FAERS Safety Report 9961363 (Version 2)
Quarter: 2014Q1

REPORT INFORMATION
  Report Type: Spontaneous
  Country: DE (occurrence: DE)
  Receive Date: 20140305
  Receipt Date: 20140327
  Transmission Date: 20141002
  Serious: Yes (Other)
  Sender: FDA-Public Use
  Company Number: DE-UCBSA-113972

PATIENT
  Age: 49 Year
  Sex: Male
  Weight: 133 kg

DRUGS (18)
  1. CIMZIA [Suspect]
     Indication: RHEUMATOID ARTHRITIS
     Dosage: NO OF DOSES RECEIVED: ONCE
     Route: 058
     Dates: start: 20140218
  2. ENBREL [Concomitant]
     Indication: CHRONIC OBSTRUCTIVE PULMONARY DISEASE
     Route: 058
     Dates: start: 201308, end: 20140205
  3. SPIRIVA [Concomitant]
     Indication: CHRONIC OBSTRUCTIVE PULMONARY DISEASE
     Dosage: FREQUENCY: ONCE; NO OF DOSES RECEIVED: 1; ROUTE: INHALER
  4. SYMBICORT [Concomitant]
     Indication: CHRONIC OBSTRUCTIVE PULMONARY DISEASE
     Dosage: FREQUENCY: TWICE; NO OF DOSES RECEIVED: 1; ROUTE: INHALER
  5. BERODUAL [Concomitant]
     Indication: CHRONIC OBSTRUCTIVE PULMONARY DISEASE
     Dosage: FREQUENCY: DAILY IF NECESSARY; NO OF DOSES RECEIVED: UPTO TWICE; ROUTE: INHALER
  6. VIGANTOLETTEN [Concomitant]
     Indication: SUPPLEMENTATION THERAPY
     Route: 048
     Dates: end: 20140225
  7. FOLIC ACID [Concomitant]
     Indication: PROPHYLAXIS
     Dosage: FREQUENCY: ON SATURDAYS
     Route: 048
  8. MTX [Concomitant]
     Indication: RHEUMATOID ARTHRITIS
     Dosage: FREQUENCY: ON FRIDAYS
     Route: 058
  9. VALSARTAN [Concomitant]
     Indication: HYPERTENSION
     Dosage: 1-0-0
     Route: 048
  10. HCT [Concomitant]
     Indication: HYPERTENSION
     Dosage: 1-0-0
     Route: 048
  11. ARCOXIA [Concomitant]
     Indication: ANALGESIC THERAPY
     Dosage: 1-0-0
     Route: 048
  12. COTRIM [Concomitant]
     Indication: PNEUMOCYSTIS JIROVECII PNEUMONIA
     Dosage: FREQUENCY: MONDAY/WEDNESDAY/FRIDAY
     Dates: end: 20140206
  13. DEKRISTOL [Concomitant]
     Indication: SUPPLEMENTATION THERAPY
     Dosage: 20000 IU; PLANNED TO STOP ON 26-FEB-2014
  14. NOVALGIN [Concomitant]
     Indication: ANALGESIC THERAPY
     Dosage: DROPS; DOSE PER INTAKE: UP TO 3X40 DROPS IF NECESSARY
  15. TILIDINE [Concomitant]
     Indication: ANALGESIC THERAPY
     Dosage: FREQUENCY: IF NECESSARY
     Dates: start: 20140210
  16. TILIDINE [Concomitant]
     Indication: ANALGESIC THERAPY
     Dosage: DROPS; DOSE: MAX 25; FREQUENCY: IF NECESSARY
     Dates: end: 20140209
  17. PREDNISOLONE [Concomitant]
     Dosage: PUFF OF 40 MG
  18. PREDNISOLONE [Concomitant]
     Dosage: DOWN-TITRATION TO 20 MG UNTIL DISCHARGE ON 25-FEB-2014

REACTIONS (1)
  - Chronic obstructive pulmonary disease [Recovering/Resolving]
